FAERS Safety Report 15848306 (Version 1)
Quarter: 2019Q1

REPORT INFORMATION
  Report Type: Spontaneous
  Country: US (occurrence: US)
  Receive Date: 20190121
  Receipt Date: 20190121
  Transmission Date: 20190417
  Serious: No
  Sender: FDA-Public Use
  Company Number: US-PFIZER INC-2019025859

PATIENT
  Age: 72 Year
  Sex: Female

DRUGS (21)
  1. HYZAAR [Suspect]
     Active Substance: HYDROCHLOROTHIAZIDE\LOSARTAN POTASSIUM
     Dosage: UNK
  2. KEFLEX [Suspect]
     Active Substance: CEPHALEXIN
     Dosage: UNK
  3. ENALAPRIL [Suspect]
     Active Substance: ENALAPRIL
     Dosage: UNK
  4. TRAMADOL. [Suspect]
     Active Substance: TRAMADOL
     Dosage: UNK
  5. DICLOFENAC SODIUM. [Suspect]
     Active Substance: DICLOFENAC SODIUM
     Dosage: UNK
  6. DILTIAZEM HCL [Suspect]
     Active Substance: DILTIAZEM HYDROCHLORIDE
     Dosage: UNK
  7. LOSARTAN. [Suspect]
     Active Substance: LOSARTAN
     Dosage: UNK
  8. PREDNISOLONE. [Suspect]
     Active Substance: PREDNISOLONE
     Dosage: UNK
  9. VERAPAMIL HCL [Suspect]
     Active Substance: VERAPAMIL HYDROCHLORIDE
     Dosage: UNK
  10. BYSTOLIC [Suspect]
     Active Substance: NEBIVOLOL HYDROCHLORIDE
     Dosage: UNK
  11. HYDRALAZINE [Suspect]
     Active Substance: HYDRALAZINE HYDROCHLORIDE
     Dosage: UNK
  12. MELOXICAM. [Suspect]
     Active Substance: MELOXICAM
     Dosage: UNK
  13. SPIRONOLACTONE. [Suspect]
     Active Substance: SPIRONOLACTONE
     Dosage: UNK
  14. ETODOLAC. [Suspect]
     Active Substance: ETODOLAC
     Dosage: UNK
  15. GLIMEPIRIDE. [Suspect]
     Active Substance: GLIMEPIRIDE
     Dosage: UNK
  16. GABAPENTIN. [Suspect]
     Active Substance: GABAPENTIN
     Dosage: UNK
  17. METOPROLOL TARTRATE. [Suspect]
     Active Substance: METOPROLOL TARTRATE
     Dosage: UNK
  18. BISOPROLOL [Suspect]
     Active Substance: BISOPROLOL
     Dosage: UNK
  19. CARVEDILOL. [Suspect]
     Active Substance: CARVEDILOL
     Dosage: UNK
  20. HYDROCODONE [Suspect]
     Active Substance: HYDROCODONE
     Dosage: UNK
  21. PERCOCET [Suspect]
     Active Substance: ACETAMINOPHEN\OXYCODONE HYDROCHLORIDE
     Dosage: UNK [7.5/325]

REACTIONS (1)
  - Drug hypersensitivity [Unknown]
